FAERS Safety Report 5498055-9 (Version None)
Quarter: 2007Q4

REPORT INFORMATION
  Report Type: 
  Country: None (occurrence: None)
  Receive Date: 20071025
  Receipt Date: 20071014
  Transmission Date: 20080405
  Serious: Yes (Other)
  Sender: FDA-Public Use
  Company Number: US-PFIZER INC-2007085812

PATIENT
  Sex: Female
  Weight: 49.09 kg

DRUGS (4)
  1. CHANTIX [Suspect]
     Indication: SMOKING CESSATION THERAPY
     Dates: start: 20071001, end: 20071013
  2. NEXIUM [Concomitant]
  3. HYDROCODONE [Concomitant]
  4. AMBIEN [Concomitant]

REACTIONS (8)
  - ABNORMAL DREAMS [None]
  - CONSTIPATION [None]
  - DYSKINESIA [None]
  - FLATULENCE [None]
  - NAUSEA [None]
  - TONGUE BITING [None]
  - VOMITING [None]
  - WRONG TECHNIQUE IN DRUG USAGE PROCESS [None]
